FAERS Safety Report 5473209-6 (Version None)
Quarter: 2007Q3

REPORT INFORMATION
  Report Type: 
  Country: None (occurrence: None)
  Receive Date: 20070927
  Receipt Date: 20070912
  Transmission Date: 20080115
  Serious: Yes (Hospitalization)
  Sender: FDA-Public Use
  Company Number: 2007001692

PATIENT
  Age: 50 Year
  Sex: Male

DRUGS (2)
  1. TARCEVA [Suspect]
     Dosage: (QD), ORAL
     Route: 048
  2. SKENAN (MORPHINE SULFATE) [Concomitant]

REACTIONS (1)
  - REVERSIBLE POSTERIOR LEUKOENCEPHALOPATHY SYNDROME [None]
